FAERS Safety Report 7000530-2 (Version None)
Quarter: 2010Q3

REPORT INFORMATION
  Report Type: 
  Country: None (occurrence: None)
  Receive Date: 20100920
  Receipt Date: 20070625
  Transmission Date: 20110219
  Serious: Yes (Other)
  Sender: FDA-Public Use
  Company Number: US-ASTRAZENECA-2006UW12312

PATIENT
  Sex: Male
  Weight: 85.7 kg

DRUGS (12)
  1. SEROQUEL [Suspect]
     Indication: SCHIZOPHRENIA, PARANOID TYPE
     Route: 048
     Dates: start: 20040112
  2. SEROQUEL [Suspect]
     Dosage: 200 MG - 600 MG
     Route: 048
     Dates: start: 20050101, end: 20060101
  3. ZYPREXA [Suspect]
  4. RISPERDAL [Concomitant]
  5. ANTIPSYCHOTIC MEDICATION [Concomitant]
     Dates: start: 20050101, end: 20060101
  6. HYDROXYZINE [Concomitant]
     Dosage: 50 MG 1 CAPSULE EACH EVENING
     Route: 048
     Dates: start: 20040112
  7. LIPITOR [Concomitant]
     Dosage: 40 MG HALF TABLET AT BEDTIME
     Route: 048
     Dates: start: 20040811
  8. BUSPIRONE HCL [Concomitant]
     Dosage: 10 MG, TWO TABLET AT BEDTIME
     Route: 048
     Dates: start: 20040914
  9. LOVASTATIN [Concomitant]
     Route: 048
     Dates: start: 20050223
  10. CLONAZEPAM [Concomitant]
     Dosage: 1/2 MG, THREE AT NIGHT
     Dates: start: 20061003
  11. LITHIUM [Concomitant]
     Dates: start: 20061003
  12. DEPAKOTE [Concomitant]
     Dates: start: 20061003

REACTIONS (3)
  - DIABETIC KETOACIDOSIS [None]
  - PANCREATITIS [None]
  - TYPE 2 DIABETES MELLITUS [None]
